FAERS Safety Report 15299617 (Version 7)
Quarter: 2019Q2

REPORT INFORMATION
  Report Type: Spontaneous
  Country: CA (occurrence: CA)
  Receive Date: 20180821
  Receipt Date: 20190625
  Transmission Date: 20190711
  Serious: Yes (Hospitalization, Other)
  Sender: FDA-Public Use
  Company Number: CA-CELLTRION INC.-2018CA021994

PATIENT

DRUGS (13)
  1. INFLECTRA [Suspect]
     Active Substance: INFLIXIMAB-DYYB
     Dosage: 400 MG, EVERY 2, 6 WEEKS, THEN EVERY 8 WEEKS
     Route: 042
     Dates: start: 20180823
  2. INFLECTRA [Suspect]
     Active Substance: INFLIXIMAB-DYYB
     Dosage: 400 MG, EVERY 2, 6 WEEKS, THEN EVERY 8 WEEKS
     Route: 042
     Dates: start: 20190109
  3. INFLECTRA [Suspect]
     Active Substance: INFLIXIMAB-DYYB
     Dosage: 400 MG, EVERY 2, 6 WEEKS, THEN EVERY 8 WEEKS
     Route: 042
     Dates: start: 20190518, end: 20190518
  4. FENTANYL. [Concomitant]
     Active Substance: FENTANYL
     Indication: COLONOSCOPY
     Dosage: 100 UNK, (100 MCG, PRE COLONOSCOPY)
     Dates: start: 20180807, end: 20180807
  5. INFLECTRA [Suspect]
     Active Substance: INFLIXIMAB-DYYB
     Dosage: 400 MG, EVERY 2, 6 WEEKS, THEN EVERY 8 WEEKS
     Route: 042
     Dates: start: 20190323
  6. INFLECTRA [Suspect]
     Active Substance: INFLIXIMAB-DYYB
     Dosage: 400 MG, EVERY 2, 6 WEEKS, THEN EVERY 8 WEEKS
     Route: 042
     Dates: start: 20190323
  7. METHYLPREDNISOLONE. [Concomitant]
     Active Substance: METHYLPREDNISOLONE
     Dosage: 30 MG, 2X/DAY
     Route: 042
     Dates: start: 20180804, end: 20180811
  8. DALTEPARIN [Concomitant]
     Active Substance: DALTEPARIN
     Dosage: 5000 IU, DAILY
     Route: 058
  9. CALCIUM [Concomitant]
     Active Substance: CALCIUM
     Dosage: UNK
     Route: 065
  10. INFLECTRA [Suspect]
     Active Substance: INFLIXIMAB-DYYB
     Indication: COLITIS ULCERATIVE
     Dosage: 400 MG, EVERY 2, 6 WEEKS, THEN EVERY 8 WEEKS
     Route: 042
     Dates: start: 20180808
  11. VITAMIN D [Concomitant]
     Active Substance: VITAMIN D NOS
     Dosage: 2000 IU, DAILY
     Route: 065
  12. PREDNISONE. [Concomitant]
     Active Substance: PREDNISONE
     Dosage: 40 MG, 1X/DAY (DECREASING 5MG, WEEKLY UNTIL FINISHED)
     Route: 048
     Dates: start: 20180809
  13. INFLECTRA [Suspect]
     Active Substance: INFLIXIMAB-DYYB
     Dosage: 400 MG, EVERY 2, 6 WEEKS, THEN EVERY 8 WEEKS
     Route: 042
     Dates: start: 20180811

REACTIONS (12)
  - Condition aggravated [Unknown]
  - Nausea [Recovering/Resolving]
  - Hyperhidrosis [Recovering/Resolving]
  - Blood pressure diastolic decreased [Unknown]
  - Drug specific antibody [Unknown]
  - Product use issue [Unknown]
  - Heart rate abnormal [Unknown]
  - Malaise [Recovering/Resolving]
  - Blood pressure fluctuation [Unknown]
  - Heart rate decreased [Unknown]
  - Drug level decreased [Unknown]
  - Off label use [Unknown]

NARRATIVE: CASE EVENT DATE: 20190518
